FAERS Safety Report 23286936 (Version 1)
Quarter: 2023Q4

REPORT INFORMATION
  Report Type: Spontaneous
  Country: IT (occurrence: IT)
  Receive Date: 20231212
  Receipt Date: 20231212
  Transmission Date: 20240109
  Serious: Yes (Hospitalization)
  Sender: FDA-Public Use
  Company Number: IT-TEVA-VS-3135058

PATIENT
  Age: 83 Year

DRUGS (4)
  1. PACLITAXEL [Suspect]
     Active Substance: PACLITAXEL
     Indication: Kaposi^s sarcoma
     Route: 042
  2. DOXORUBICIN [Suspect]
     Active Substance: DOXORUBICIN
     Indication: Kaposi^s sarcoma
     Route: 042
  3. GEMCITABINE [Suspect]
     Active Substance: GEMCITABINE
     Indication: Kaposi^s sarcoma
     Route: 042
  4. VINBLASTINE [Suspect]
     Active Substance: VINBLASTINE
     Indication: Kaposi^s sarcoma
     Route: 042

REACTIONS (4)
  - Hepatotoxicity [Unknown]
  - Neutropenia [Unknown]
  - Urinary tract infection [Unknown]
  - Drug ineffective [Unknown]
